APPROVED DRUG PRODUCT: TRIDIL
Active Ingredient: NITROGLYCERIN
Strength: 0.5MG/ML
Dosage Form/Route: INJECTABLE;INJECTION
Application: N018537 | Product #002
Applicant: HOSPIRA INC
Approved: Jun 16, 1983 | RLD: No | RS: No | Type: DISCN